FAERS Safety Report 13365628 (Version 1)
Quarter: 2017Q1

REPORT INFORMATION
  Report Type: Spontaneous
  Country: US (occurrence: US)
  Receive Date: 20170323
  Receipt Date: 20170323
  Transmission Date: 20170429
  Serious: No
  Sender: FDA-Public Use
  Company Number: US-ALLERGAN-2016-001403

PATIENT
  Sex: Female
  Weight: 81.6 kg

DRUGS (10)
  1. ESTRACE [Suspect]
     Active Substance: ESTRADIOL
     Dosage: UNK UNK, UNKNOWN
     Route: 067
     Dates: start: 20160125
  2. HYDROCHLOROTHIAZIDE. [Concomitant]
     Active Substance: HYDROCHLOROTHIAZIDE
     Indication: DIURETIC THERAPY
     Dosage: 12.5 MG, UNKNOWN
     Dates: start: 2006
  3. TYLENOL [Concomitant]
     Active Substance: ACETAMINOPHEN
     Indication: PAIN
  4. TYLENOL [Concomitant]
     Active Substance: ACETAMINOPHEN
     Indication: HEADACHE
  5. VITAMIN D [Concomitant]
     Active Substance: CHOLECALCIFEROL
     Indication: VITAMIN D DECREASED
     Dosage: 2000 IU, QD
     Route: 065
  6. ALLEGRA [Concomitant]
     Active Substance: FEXOFENADINE HYDROCHLORIDE
     Indication: SINUS DISORDER
     Dosage: 180 MG, PRN
     Route: 065
     Dates: start: 1996
  7. VALSARTAN. [Concomitant]
     Active Substance: VALSARTAN
     Indication: HYPERTENSION
     Dosage: 80 MG, UNKNOWN
     Route: 065
  8. TYLENOL [Concomitant]
     Active Substance: ACETAMINOPHEN
     Indication: PAIN
     Dosage: TAKES MAYBE ONCE OR TWICE A MONTH
     Route: 065
  9. RESTASIS [Concomitant]
     Active Substance: CYCLOSPORINE
     Indication: DRY EYE
     Dosage: 1 DROP IN EACH EYE ONCE A DAY
     Route: 047
     Dates: start: 2015
  10. SIMVASTATIN. [Concomitant]
     Active Substance: SIMVASTATIN
     Indication: BLOOD CHOLESTEROL ABNORMAL
     Dosage: 20 MG, UNKNOWN
     Route: 065
     Dates: start: 2013

REACTIONS (1)
  - Headache [Unknown]
